FAERS Safety Report 6516102-X (Version None)
Quarter: 2009Q4

REPORT INFORMATION
  Report Type: 
  Country: None (occurrence: None)
  Receive Date: 20091223
  Receipt Date: 20091207
  Transmission Date: 20100525
  Serious: Yes (Hospitalization)
  Sender: FDA-Public Use
  Company Number: US-SANOFI-AVENTIS-2009SA009744

PATIENT
  Age: 72 Year
  Sex: Male

DRUGS (7)
  1. DOCETAXEL [Suspect]
     Indication: PROSTATE CANCER
     Route: 041
  2. INVESTIGATIONAL DRUG [Suspect]
     Indication: PROSTATE CANCER
     Route: 048
     Dates: start: 20091014
  3. PREDNISONE [Suspect]
     Indication: PROSTATE CANCER
     Route: 048
  4. DEXAMETHASONE TAB [Suspect]
     Indication: PREMEDICATION
  5. METFORMIN HCL [Suspect]
     Dates: start: 20080905, end: 20091114
  6. GLIMEPIRIDE [Suspect]
     Dates: start: 20080905, end: 20091114
  7. RAMIPRIL [Concomitant]
     Dates: start: 20091104

REACTIONS (4)
  - DIARRHOEA [None]
  - FATIGUE [None]
  - HYPOGLYCAEMIA [None]
  - NAUSEA [None]
